FAERS Safety Report 7201003-4 (Version None)
Quarter: 2010Q4

REPORT INFORMATION
  Report Type: 
  Country: None (occurrence: None)
  Receive Date: 20101228
  Receipt Date: 20101220
  Transmission Date: 20110411
  Serious: Yes (Hospitalization)
  Sender: FDA-Public Use
  Company Number: DE-AMGEN INC.-DEUCT2010000252

PATIENT
  Sex: Male

DRUGS (23)
  1. PANITUMUMAB [Suspect]
     Indication: COLORECTAL CANCER
     Dosage: 6 MG/KG, Q2WK
     Route: 042
     Dates: start: 20100809
  2. IRINOTECAN HCL [Suspect]
     Dosage: 150 MG/KG, Q2WK
     Route: 042
     Dates: start: 20100809
  3. BISPROLOL COMP [Concomitant]
     Dosage: UNK UNK, QD
     Route: 048
     Dates: start: 20061126
  4. FUROSEMID                          /00032601/ [Concomitant]
     Dosage: UNK UNK, QD
     Route: 048
     Dates: start: 20061026
  5. PANTOZOL                           /01263202/ [Concomitant]
     Dosage: UNK, QD
     Route: 048
     Dates: start: 20091117
  6. POTASSIUM [Concomitant]
     Dosage: UNK UNK, TID
     Route: 048
     Dates: start: 20061228
  7. MOVICOL                            /01053601/ [Concomitant]
     Dosage: UNK UNK, TID
     Route: 048
     Dates: start: 20081001
  8. MAGNESIUM [Concomitant]
     Dosage: UNK UNK, BID
     Route: 048
     Dates: start: 20100729
  9. ZOLPIDEM [Concomitant]
     Dosage: UNK UNK, QD
     Route: 048
     Dates: start: 20100721
  10. DOXYCYCLIN                         /00055701/ [Concomitant]
     Dosage: UNK UNK, QD
     Route: 048
     Dates: start: 20100809
  11. DEXAMETHASONE [Concomitant]
     Dosage: UNK UNK, Q2WK
     Route: 048
     Dates: start: 20100810
  12. KEVATRIL [Concomitant]
     Dosage: UNK UNK, Q2WK
     Route: 042
     Dates: start: 20100809
  13. ELOBACT [Concomitant]
     Dosage: 500 ML, BID
     Route: 048
     Dates: start: 20100913, end: 20100920
  14. SPIRONOLACTONE [Concomitant]
     Dosage: 25 ML, QD
     Route: 048
     Dates: start: 20100913, end: 20100916
  15. VITAMIN B12                        /00056201/ [Concomitant]
     Dosage: UNK UNK, QD
     Route: 042
     Dates: start: 20100913, end: 20100913
  16. SALVIATHYMOL [Concomitant]
     Dosage: 50 ML, TID
     Dates: start: 20100913
  17. ATROPIN                            /00002801/ [Concomitant]
     Dosage: UNK UNK, Q2WK
     Dates: start: 20100927
  18. AMINOMIX                           /00994901/ [Concomitant]
     Dosage: 1000 ML, UNK
     Route: 042
     Dates: start: 20100927, end: 20100929
  19. FRESUBIN [Concomitant]
     Dosage: UNK UNK, TID
     Route: 048
     Dates: start: 20100930
  20. THYME                              /01516901/ [Concomitant]
     Dosage: UNK
     Dates: start: 20100919, end: 20100919
  21. DIMETICON                          /00159501/ [Concomitant]
     Dosage: UNK UNK, QD
     Route: 048
     Dates: start: 20100928, end: 20100928
  22. PARACODIN                          /00063001/ [Concomitant]
     Dosage: UNK UNK, QD
     Route: 048
     Dates: start: 20100913, end: 20100928
  23. RIOPAN                             /00141701/ [Concomitant]
     Dosage: 1600 ML, UNK
     Dates: start: 20100915

REACTIONS (1)
  - STOMATITIS [None]
